FAERS Safety Report 4967614-1 (Version None)
Quarter: 2006Q2

REPORT INFORMATION
  Report Type: 
  Country: None (occurrence: None)
  Receive Date: 20060407
  Receipt Date: 20060407
  Transmission Date: 20061013
  Serious: Yes (Hospitalization, Other)
  Sender: FDA-Public Use
  Company Number: None

PATIENT
  Sex: Female
  Weight: 70.4 kg

DRUGS (2)
  1. FLUOROURACIL [Suspect]
     Indication: BREAST CANCER FEMALE
     Dosage: 900 MG
     Dates: start: 20060130
  2. CYCLOPHOSPHAMIDE [Suspect]
     Dosage: 900 MG
     Dates: start: 20060130

REACTIONS (11)
  - ABSCESS [None]
  - DIVERTICULITIS [None]
  - HAEMODIALYSIS [None]
  - INFECTION [None]
  - INTESTINAL PERFORATION [None]
  - MALAISE [None]
  - MYOPATHY [None]
  - NEUROPATHY [None]
  - NEUTROPENIA [None]
  - PERITONITIS [None]
  - RENAL FAILURE ACUTE [None]
